FAERS Safety Report 6087070-2 (Version None)
Quarter: 2009Q1

REPORT INFORMATION
  Report Type: 
  Country: None (occurrence: None)
  Receive Date: 20090223
  Receipt Date: 20090217
  Transmission Date: 20090719
  Serious: Yes (Hospitalization, Other)
  Sender: FDA-Public Use
  Company Number: PHBS2009TW00850

PATIENT
  Age: 41 Year
  Sex: Male

DRUGS (4)
  1. CYCLOSPORINE [Suspect]
     Indication: SYSTEMIC SCLEROSIS
     Dosage: 3.5 MG/KG/DAY
     Dates: start: 20051201, end: 20060101
  2. PLASMA [Concomitant]
  3. METHYLPREDNISOLONE 4MG TAB [Concomitant]
     Dosage: 1 MG/KG/DAY
  4. NIFEDIPINE [Concomitant]

REACTIONS (20)
  - ANAEMIA [None]
  - ASTHENIA [None]
  - BLOOD BILIRUBIN INCREASED [None]
  - BLOOD CREATININE INCREASED [None]
  - BLOOD LACTATE DEHYDROGENASE INCREASED [None]
  - HAEMATURIA [None]
  - HAEMOLYTIC URAEMIC SYNDROME [None]
  - HAPTOGLOBIN DECREASED [None]
  - HYPERTENSION [None]
  - KIDNEY FIBROSIS [None]
  - LEUKOCYTOSIS [None]
  - LUNG INFILTRATION [None]
  - NEPHROPATHY TOXIC [None]
  - PROTEINURIA [None]
  - RED BLOOD CELL ABNORMALITY [None]
  - RENAL IMPAIRMENT [None]
  - RETICULOCYTE COUNT INCREASED [None]
  - TACHYCARDIA [None]
  - THROMBOCYTOPENIA [None]
  - URINE ANALYSIS ABNORMAL [None]
